FAERS Safety Report 8166079-9 (Version None)
Quarter: 2012Q1

REPORT INFORMATION
  Report Type: 
  Country: None (occurrence: None)
  Receive Date: 20120227
  Receipt Date: 20110325
  Transmission Date: 20120608
  Serious: No
  Sender: FDA-Public Use
  Company Number: US-MYLANLABS-2011S1005216

PATIENT
  Age: 25 Year
  Sex: Female
  Weight: 51.71 kg

DRUGS (4)
  1. AMNESTEEM [Suspect]
     Indication: ACNE CYSTIC
     Route: 048
     Dates: start: 20110114, end: 20110303
  2. YAZ /01502501/ [Concomitant]
  3. ADDERALL 5 [Concomitant]
  4. PERCOCET [Concomitant]
     Indication: MUSCLE STRAIN

REACTIONS (1)
  - HAEMATOCHEZIA [None]
